FAERS Safety Report 10256807 (Version 2)
Quarter: 2014Q3

REPORT INFORMATION
  Report Type: Report from Study
  Country: CN (occurrence: CN)
  Receive Date: 20140625
  Receipt Date: 20140707
  Transmission Date: 20150326
  Serious: Yes (Other)
  Sender: FDA-Public Use
  Company Number: CN-ROCHE-1419823

PATIENT

DRUGS (2)
  1. OXALIPLATIN. [Suspect]
     Active Substance: OXALIPLATIN
     Indication: RECTAL CANCER
     Dosage: OXALIPLATIN 50-80 MG/M2 (MEDIAN 60 MG/M2) THROUGH INTRAVENOUS DRIP OVER 2 H EVERY WEEK.
     Route: 041
  2. CAPECITABINE [Suspect]
     Active Substance: CAPECITABINE
     Indication: RECTAL CANCER
     Dosage: CAPECITABINE 1300-1650 MG/M2 (MEDIAN 1300 MG/M2) IN 2 ORAL DOSES EVERY DAY
     Route: 048

REACTIONS (14)
  - Decreased appetite [Unknown]
  - White blood cell count decreased [Unknown]
  - Transaminases increased [Unknown]
  - Vomiting [Unknown]
  - Platelet count decreased [Unknown]
  - Weight decreased [Unknown]
  - Blood bilirubin increased [Unknown]
  - Asthenia [Unknown]
  - Neurotoxicity [Unknown]
  - Nausea [Unknown]
  - Diarrhoea [Unknown]
  - Gastroenteritis radiation [Unknown]
  - Palmar-plantar erythrodysaesthesia syndrome [Unknown]
  - Radiation skin injury [Unknown]
